FAERS Safety Report 10016816 (Version 2)
Quarter: 2014Q1

REPORT INFORMATION
  Report Type: Report from Study
  Country: IT (occurrence: IT)
  Receive Date: 20140318
  Receipt Date: 20140318
  Transmission Date: 20141002
  Serious: Yes (Hospitalization)
  Sender: FDA-Public Use
  Company Number: PHHO2012IT010432

PATIENT
  Age: 53 Year
  Sex: Female

DRUGS (7)
  1. NEORAL [Suspect]
     Indication: HEART TRANSPLANT
     Dosage: 75 MG, BID
     Dates: start: 20110331, end: 20110621
  2. EVEROLIMUS [Suspect]
     Indication: HEART TRANSPLANT
     Dosage: 0.75 MG, BID
     Dates: start: 20110403, end: 20110621
  3. LESCOL [Suspect]
     Indication: HYPERCHOLESTEROLAEMIA
     Dosage: 10 MG, UNK
     Dates: start: 20110518
  4. DELTACORTENE [Concomitant]
     Dosage: 20 MG, UNK
     Dates: start: 20110331
  5. LASIX [Concomitant]
     Indication: CARDIAC FAILURE CONGESTIVE
     Dosage: 25 MG, UNK
     Dates: start: 20110331
  6. PANTORC [Concomitant]
     Indication: PROPHYLAXIS
     Dosage: 10 MG, UNK
     Dates: start: 20110330
  7. KANRENOL [Concomitant]
     Indication: CARDIAC FAILURE CONGESTIVE
     Dosage: 50 MG, UNK
     Dates: start: 20110613, end: 20110619

REACTIONS (1)
  - Petit mal epilepsy [Recovered/Resolved]
